FAERS Safety Report 17049774 (Version 2)
Quarter: 2019Q4

REPORT INFORMATION
  Report Type: Spontaneous
  Country: US (occurrence: US)
  Receive Date: 20191119
  Receipt Date: 20191129
  Transmission Date: 20200122
  Serious: Yes (Hospitalization)
  Sender: FDA-Public Use
  Company Number: US-TEVA-2019-US-1138616

PATIENT
  Age: 8 Month
  Sex: Female

DRUGS (1)
  1. CEFALEXIN [Suspect]
     Active Substance: CEPHALEXIN
     Indication: OTITIS MEDIA
     Route: 065

REACTIONS (5)
  - Enteritis [Recovered/Resolved]
  - Ecthyma [Recovered/Resolved]
  - Diarrhoea [Recovered/Resolved]
  - Pseudomonas infection [Recovered/Resolved]
  - Gastrointestinal bacterial infection [Recovered/Resolved]
